FAERS Safety Report 4954616-4 (Version None)
Quarter: 2006Q1

REPORT INFORMATION
  Report Type: 
  Country: None (occurrence: None)
  Receive Date: 20060327
  Receipt Date: 20060316
  Transmission Date: 20060701
  Serious: Yes (Hospitalization)
  Sender: FDA-Public Use
  Company Number: AU-ROCHE-440801

PATIENT
  Age: 33 Year
  Sex: Male
  Weight: 87 kg

DRUGS (11)
  1. VESANOID [Suspect]
     Indication: DRUG USE FOR UNKNOWN INDICATION
     Route: 048
     Dates: start: 20050526, end: 20050720
  2. PROGOUT [Concomitant]
     Dates: start: 20050625, end: 20051103
  3. VALTREX [Concomitant]
     Indication: PROPHYLAXIS
     Dates: start: 20050526
  4. DIFLUCAN [Concomitant]
     Indication: PROPHYLAXIS
     Dates: start: 20050526, end: 20050718
  5. DIFFLAM [Concomitant]
     Indication: AGRANULOCYTOSIS
  6. SODIBIC [Concomitant]
     Indication: AGRANULOCYTOSIS
  7. PRAMIN [Concomitant]
     Indication: VOMITING
  8. ZAVEDOS [Concomitant]
  9. VANCOCIN [Concomitant]
  10. ZOFRAN [Concomitant]
     Indication: VOMITING
  11. PANAFCORTELONE [Concomitant]

REACTIONS (2)
  - ARTHRALGIA [None]
  - JOINT SWELLING [None]
